FAERS Safety Report 25260103 (Version 1)
Quarter: 2025Q2

REPORT INFORMATION
  Report Type: Spontaneous
  Country: PL (occurrence: PL)
  Receive Date: 20250501
  Receipt Date: 20250501
  Transmission Date: 20250717
  Serious: Yes (Other)
  Sender: AMGEN
  Company Number: PL-AMGEN-POLSP2025080782

PATIENT
  Age: 66 Year
  Sex: Female
  Weight: 70 kg

DRUGS (3)
  1. PROLIA [Suspect]
     Active Substance: DENOSUMAB
     Indication: Osteoporosis
     Route: 065
     Dates: start: 202107
  2. VITAMIN D3 [Concomitant]
     Active Substance: CHOLECALCIFEROL
     Route: 065
  3. CALCIUM CARBONATE\VITAMIN D [Concomitant]
     Active Substance: CALCIUM CARBONATE\VITAMIN D
     Route: 065

REACTIONS (10)
  - Lumbar vertebral fracture [Unknown]
  - Thoracic vertebral fracture [Unknown]
  - Bone density decreased [Unknown]
  - Herpes zoster [Unknown]
  - Gait disturbance [Unknown]
  - Aspartate aminotransferase increased [Unknown]
  - Neuralgia [Unknown]
  - Biernacki^s sign [Unknown]
  - Mobility decreased [Unknown]
  - Haemangioma of bone [Unknown]

NARRATIVE: CASE EVENT DATE: 20231101
